FAERS Safety Report 5401989-4 (Version None)
Quarter: 2007Q3

REPORT INFORMATION
  Report Type: 
  Country: None (occurrence: None)
  Receive Date: 20070727
  Receipt Date: 20070719
  Transmission Date: 20080115
  Serious: Yes (Hospitalization)
  Sender: FDA-Public Use
  Company Number: 2007-03411

PATIENT
  Age: 43 Year
  Sex: Female

DRUGS (1)
  1. TRELSTAR [Suspect]
     Indication: ENDOMETRIOSIS
     Dosage: 11.25 MG, 1 Q3 MONTHS, INTRAMSUCULAR
     Route: 030
     Dates: start: 20070501, end: 20070501

REACTIONS (11)
  - BURNING SENSATION [None]
  - DECREASED APPETITE [None]
  - GLOSSODYNIA [None]
  - INSOMNIA [None]
  - MOUTH ULCERATION [None]
  - ORAL DISCOMFORT [None]
  - ORAL INTAKE REDUCED [None]
  - ORAL PAIN [None]
  - PAIN [None]
  - PHOTOSENSITIVITY REACTION [None]
  - TONGUE DRY [None]
